FAERS Safety Report 7385321-5 (Version None)
Quarter: 2011Q1

REPORT INFORMATION
  Report Type: 
  Country: None (occurrence: None)
  Receive Date: 20110330
  Receipt Date: 20100716
  Transmission Date: 20110831
  Serious: No
  Sender: FDA-Public Use
  Company Number: US-MYLANLABS-2010S1013119

PATIENT
  Age: 49 Year
  Sex: Male
  Weight: 90.72 kg

DRUGS (1)
  1. EMSAM [Suspect]
     Indication: DEPRESSION
     Dosage: Q24H
     Route: 062
     Dates: start: 20100714

REACTIONS (1)
  - THINKING ABNORMAL [None]
